FAERS Safety Report 17949337 (Version 1)
Quarter: 2020Q2

REPORT INFORMATION
  Report Type: Spontaneous
  Country: US (occurrence: BR)
  Receive Date: 20200625
  Receipt Date: 20200625
  Transmission Date: 20200714
  Serious: Yes (Death, Other)
  Sender: FDA-Public Use
  Company Number: BR-BIOMARINAP-BR-2020-130811

PATIENT
  Age: 18 Year
  Sex: Female
  Weight: 54 kg

DRUGS (1)
  1. ALDURAZYME [Suspect]
     Active Substance: LARONIDASE
     Indication: PRODUCT USED FOR UNKNOWN INDICATION
     Dosage: 11 DOSAGE FORM
     Route: 041
     Dates: start: 20111001, end: 20200224

REACTIONS (5)
  - Fatigue [Unknown]
  - Cough [Unknown]
  - Cardiac disorder [Unknown]
  - Dyspnoea [Unknown]
  - Death [Fatal]

NARRATIVE: CASE EVENT DATE: 20200501
